FAERS Safety Report 7182546-9 (Version None)
Quarter: 2010Q4

REPORT INFORMATION
  Report Type: 
  Country: None (occurrence: None)
  Receive Date: 20101221
  Receipt Date: 20100515
  Transmission Date: 20110411
  Serious: No
  Sender: FDA-Public Use
  Company Number: US-AMGEN-TCS412572

PATIENT

DRUGS (1)
  1. ENBREL [Suspect]
     Indication: RHEUMATOID ARTHRITIS
     Dosage: 50 MG, QWK
     Route: 058
     Dates: start: 20090701, end: 20100413

REACTIONS (6)
  - COUGH [None]
  - EAR CONGESTION [None]
  - EAR PAIN [None]
  - HEADACHE [None]
  - HYPOACUSIS [None]
  - RHEUMATOID ARTHRITIS [None]
